FAERS Safety Report 4479029-3 (Version None)
Quarter: 2004Q4

REPORT INFORMATION
  Report Type: 
  Country: None (occurrence: None)
  Receive Date: 20041015
  Receipt Date: 20041001
  Transmission Date: 20050328
  Serious: Yes (Death, Life-Threatening, Hospitalization)
  Sender: FDA-Public Use
  Company Number: 105192ISR

PATIENT
  Sex: Female

DRUGS (1)
  1. FLUOROURACIL [Suspect]

REACTIONS (1)
  - APLASIA [None]
